FAERS Safety Report 17846860 (Version 2)
Quarter: 2021Q3

REPORT INFORMATION
  Report Type: Report from Study
  Country: US (occurrence: US)
  Receive Date: 20200601
  Receipt Date: 20210730
  Transmission Date: 20211014
  Serious: Yes (Hospitalization, Other)
  Sender: FDA-Public Use
  Company Number: US-BRISTOL-MYERS SQUIBB COMPANY-BMS-2020-041669

PATIENT
  Age: 78 Year
  Sex: Female

DRUGS (1)
  1. APIXABAN [Suspect]
     Active Substance: APIXABAN
     Indication: PRODUCT USED FOR UNKNOWN INDICATION
     Dosage: 2.5 MILLIGRAM, BID
     Route: 048

REACTIONS (9)
  - Feeling cold [Unknown]
  - Poor peripheral circulation [Unknown]
  - Face injury [Unknown]
  - Ear haemorrhage [Unknown]
  - Product supply issue [Unknown]
  - Blood pressure abnormal [Unknown]
  - Wound haemorrhage [Unknown]
  - Fall [Unknown]
  - Illness [Unknown]
